FAERS Safety Report 8188494-X (Version None)
Quarter: 2012Q1

REPORT INFORMATION
  Report Type: 
  Country: None (occurrence: None)
  Receive Date: 20120306
  Receipt Date: 20120229
  Transmission Date: 20120608
  Serious: Yes (Hospitalization)
  Sender: FDA-Public Use
  Company Number: PHHO2012DE002935

PATIENT
  Sex: Male
  Weight: 102 kg

DRUGS (4)
  1. TASIGNA [Suspect]
     Indication: CHRONIC MYELOID LEUKAEMIA
     Dosage: 300 MG, BID
     Route: 048
     Dates: start: 20111228
  2. SIMVASTATIN [Concomitant]
     Indication: HYPERLIPIDAEMIA
     Dosage: 20 MG, DAILY
  3. ASPIRIN [Concomitant]
     Indication: CORONARY ARTERY DISEASE
     Dosage: 100 MG, QD
  4. BENSERAZIDE HYDROCHLORIDE W/LEVODOPA [Concomitant]
     Indication: RESTLESS LEGS SYNDROME
     Dosage: 25 MG/10 MG ONCE DAILY
     Dates: end: 20120215

REACTIONS (3)
  - CHEST PAIN [None]
  - ACUTE MYOCARDIAL INFARCTION [None]
  - DYSPNOEA EXERTIONAL [None]
